FAERS Safety Report 7928700-7 (Version None)
Quarter: 2011Q4

REPORT INFORMATION
  Report Type: 
  Country: None (occurrence: None)
  Receive Date: 20111118
  Receipt Date: 20111107
  Transmission Date: 20120403
  Serious: Yes (Other)
  Sender: FDA-Public Use
  Company Number: FR-MYLANLABS-2011S1023143

PATIENT
  Age: 42 Year
  Sex: Female

DRUGS (4)
  1. NEVIRAPINE [Concomitant]
     Indication: HIV INFECTION
     Route: 065
     Dates: start: 20050301
  2. LEVOTHYROXINE SODIUM [Suspect]
     Indication: THYROID CYST
     Route: 065
     Dates: start: 20061101
  3. RITONAVIR [Interacting]
     Indication: HIV INFECTION
     Route: 065
     Dates: start: 20050301
  4. FOSAMPRENAVIR [Interacting]
     Indication: HIV INFECTION
     Dosage: 100 MICROG (INITIAL DOSAGE AND FREQUENCY UNKNOWN)
     Route: 065
     Dates: start: 20050301

REACTIONS (1)
  - DRUG INTERACTION [None]
